FAERS Safety Report 15723566 (Version 1)
Quarter: 2018Q4

REPORT INFORMATION
  Report Type: Spontaneous
  Country: US (occurrence: US)
  Receive Date: 20181130
  Receipt Date: 20181130
  Transmission Date: 20190205
  Serious: No
  Sender: FDA-Public Use
  Company Number: None

PATIENT
  Age: 88 Year
  Sex: Female

DRUGS (1)
  1. SENSIPAR [Suspect]
     Active Substance: CINACALCET HYDROCHLORIDE
     Indication: HYPERPARATHYROIDISM PRIMARY
     Route: 048
     Dates: start: 20180618

REACTIONS (6)
  - Increased viscosity of bronchial secretion [None]
  - Fluid intake reduced [None]
  - Food refusal [None]
  - Nausea [None]
  - Dysgeusia [None]
  - Blood calcium increased [None]

NARRATIVE: CASE EVENT DATE: 20181103
